FAERS Safety Report 15878771 (Version 2)
Quarter: 2019Q1

REPORT INFORMATION
  Report Type: Spontaneous
  Country: AU (occurrence: AU)
  Receive Date: 20190128
  Receipt Date: 20190306
  Transmission Date: 20190417
  Serious: Yes (Hospitalization, Other)
  Sender: FDA-Public Use
  Company Number: AU-B.I. PHARMACEUTICALS,INC./RIDGEFIELD-2019-BI-002764

PATIENT
  Age: 69 Year
  Sex: Male
  Weight: 83 kg

DRUGS (1)
  1. JARDIAMET [Suspect]
     Active Substance: EMPAGLIFLOZIN\METFORMIN HYDROCHLORIDE
     Indication: TYPE 2 DIABETES MELLITUS
     Dosage: STRENGTH: 5MG/1000MG
     Route: 065
     Dates: start: 201810, end: 20190107

REACTIONS (2)
  - Ketoacidosis [Recovered/Resolved]
  - Radical prostatectomy [Unknown]

NARRATIVE: CASE EVENT DATE: 20190107
